FAERS Safety Report 11787664 (Version 2)
Quarter: 2015Q4

REPORT INFORMATION
  Report Type: Report from Study
  Country: FR (occurrence: FR)
  Receive Date: 20151130
  Receipt Date: 20151218
  Transmission Date: 20160305
  Serious: Yes (Hospitalization, Other)
  Sender: FDA-Public Use
  Company Number: FR-JAZZ-JPI-P-002633

PATIENT
  Age: 62 Year
  Sex: Male
  Weight: 103 kg

DRUGS (7)
  1. XYREM [Suspect]
     Active Substance: SODIUM OXYBATE
     Dosage: 3.75 G, BID
     Route: 048
     Dates: start: 20111202
  2. XYREM [Suspect]
     Active Substance: SODIUM OXYBATE
     Dosage: 3.75 G, BID
     Route: 048
     Dates: start: 20090909, end: 20091009
  3. ACTOS [Concomitant]
     Active Substance: PIOGLITAZONE HYDROCHLORIDE
     Indication: DIABETES MELLITUS
  4. XYREM [Suspect]
     Active Substance: SODIUM OXYBATE
     Dosage: TWICE NIGHTLY
     Route: 048
     Dates: start: 20091020
  5. XYREM [Suspect]
     Active Substance: SODIUM OXYBATE
     Indication: DYSSOMNIA
     Dosage: 3 G, BID
     Route: 048
  6. XYREM [Suspect]
     Active Substance: SODIUM OXYBATE
     Indication: NARCOLEPSY
     Dosage: 2.25 G, BID
     Route: 048
     Dates: start: 20070927
  7. GLUCOR [Concomitant]
     Active Substance: ACARBOSE
     Indication: DIABETES MELLITUS

REACTIONS (11)
  - Condition aggravated [Recovered/Resolved]
  - Condition aggravated [Recovered/Resolved]
  - Catheterisation cardiac [Unknown]
  - Pruritus [Recovered/Resolved]
  - Diabetes mellitus [Recovered/Resolved]
  - Sleep apnoea syndrome [Recovered/Resolved]
  - Middle insomnia [Recovered/Resolved]
  - Carpal tunnel syndrome [Unknown]
  - Joint arthroplasty [Unknown]
  - Muscle spasms [Recovered/Resolved]
  - Dry skin [Recovered/Resolved]

NARRATIVE: CASE EVENT DATE: 20070927
